FAERS Safety Report 16288038 (Version 2)
Quarter: 2019Q4

REPORT INFORMATION
  Report Type: Spontaneous
  Country: CA (occurrence: CA)
  Receive Date: 20190508
  Receipt Date: 20191007
  Transmission Date: 20200122
  Serious: Yes (Other)
  Sender: FDA-Public Use
  Company Number: CA-PURDUE-CAN-2019-0010044

PATIENT
  Sex: Female
  Weight: 72.1 kg

DRUGS (2)
  1. TRI-CYCLEN LO [Concomitant]
     Active Substance: ETHINYL ESTRADIOL\NORGESTIMATE
     Indication: ANOVULATORY CYCLE
     Dosage: UNK
     Route: 065
  2. FOQUEST [Suspect]
     Active Substance: METHYLPHENIDATE HYDROCHLORIDE
     Indication: ATTENTION DEFICIT/HYPERACTIVITY DISORDER
     Dosage: 45 MG, DAILY
     Route: 065

REACTIONS (2)
  - Eye contusion [Unknown]
  - Headache [Unknown]
